FAERS Safety Report 6365145-8 (Version None)
Quarter: 2009Q3

REPORT INFORMATION
  Report Type: 
  Country: None (occurrence: None)
  Receive Date: 20090919
  Receipt Date: 20090807
  Transmission Date: 20100115
  Serious: No
  Sender: FDA-Public Use
  Company Number: US-ABBOTT-09P-163-0590162-00

PATIENT
  Sex: Male

DRUGS (3)
  1. HUMIRA [Suspect]
     Indication: CROHN'S DISEASE
     Dates: start: 20081006
  2. ACASA [Concomitant]
     Indication: RENAL DISORDER
  3. MEDICATION FOR BIPOLAR DISORDER [Concomitant]
     Indication: BIPOLAR DISORDER

REACTIONS (1)
  - WEIGHT DECREASED [None]
